FAERS Safety Report 5342728-5 (Version None)
Quarter: 2007Q2

REPORT INFORMATION
  Report Type: 
  Country: None (occurrence: None)
  Receive Date: 20070601
  Receipt Date: 20070523
  Transmission Date: 20071010
  Serious: Yes (Other)
  Sender: FDA-Public Use
  Company Number: US-PFIZER INC-2007041762

PATIENT
  Sex: Female

DRUGS (1)
  1. NORVASC [Suspect]
     Indication: BLOOD PRESSURE
     Dosage: TEXT:UNKNOWN

REACTIONS (3)
  - MUSCLE SPASMS [None]
  - NASOPHARYNGITIS [None]
  - UNEVALUABLE EVENT [None]
